FAERS Safety Report 4521173-6 (Version None)
Quarter: 2004Q4

REPORT INFORMATION
  Report Type: 
  Country: None (occurrence: None)
  Receive Date: 20041206
  Receipt Date: 20041122
  Transmission Date: 20050328
  Serious: Yes (Life-Threatening)
  Sender: FDA-Public Use
  Company Number: 2004240557JP

PATIENT
  Age: 66 Year
  Sex: Female
  Weight: 54 kg

DRUGS (2)
  1. IRINOTECAN HCL [Suspect]
     Indication: ENDOMETRIAL CANCER
     Dosage: 146 MG, INTRAVENOUS
     Route: 042
     Dates: start: 20040802, end: 20040819
  2. MITOMYCIN [Suspect]
     Indication: ENDOMETRIAL CANCER
     Dosage: INTRAVENOUS
     Route: 042
     Dates: start: 20040802, end: 20040819

REACTIONS (4)
  - CHEST X-RAY ABNORMAL [None]
  - INTERSTITIAL LUNG DISEASE [None]
  - PO2 DECREASED [None]
  - PYREXIA [None]
